FAERS Safety Report 12612257 (Version 2)
Quarter: 2016Q3

REPORT INFORMATION
  Report Type: Report from Study
  Country: AR (occurrence: AR)
  Receive Date: 20160801
  Receipt Date: 20160812
  Transmission Date: 20161109
  Serious: Yes (Hospitalization)
  Sender: FDA-Public Use
  Company Number: PHHY2016AR104617

PATIENT
  Age: 75 Year
  Sex: Male

DRUGS (1)
  1. EXFORGE [Suspect]
     Active Substance: AMLODIPINE BESYLATE\VALSARTAN
     Indication: HYPERTENSION
     Dosage: 1 DF (AMLODIPINE 10, VALSARTAN 320, UNITS WERE NOT REPORTED), QD
     Route: 065
     Dates: end: 20160315

REACTIONS (2)
  - Aortic dilatation [Recovering/Resolving]
  - Renal neoplasm [Recovering/Resolving]

NARRATIVE: CASE EVENT DATE: 201603
